FAERS Safety Report 24128404 (Version 1)
Quarter: 2024Q3

REPORT INFORMATION
  Report Type: Spontaneous
  Country: US (occurrence: None)
  Receive Date: 20240722
  Receipt Date: 20240722
  Transmission Date: 20241017
  Serious: Yes (Other)
  Sender: Public
  Company Number: None

PATIENT
  Age: 53 Year
  Sex: Female
  Weight: 55.35 kg

DRUGS (6)
  1. MONTELUKAST SODIUM [Suspect]
     Active Substance: MONTELUKAST SODIUM
     Indication: Asthma
     Dosage: 90 TABLETS DAILY ORAL
     Route: 048
     Dates: start: 20230816, end: 20240719
  2. NEBIVOLOL [Concomitant]
     Active Substance: NEBIVOLOL
  3. TRELEGY ELLIPTA [Concomitant]
     Active Substance: FLUTICASONE FUROATE\UMECLIDINIUM BROMIDE\VILANTEROL TRIFENATATE
  4. MULTI-VITAMINS [Concomitant]
  5. FISH OIL [Concomitant]
     Active Substance: FISH OIL
  6. PROBIOTICS NOS [Concomitant]
     Active Substance: PROBIOTICS NOS

REACTIONS (4)
  - Swelling of eyelid [None]
  - Swelling face [None]
  - Dermatitis [None]
  - Pruritus [None]

NARRATIVE: CASE EVENT DATE: 20240601
